FAERS Safety Report 24654751 (Version 3)
Quarter: 2024Q4

REPORT INFORMATION
  Report Type: Spontaneous
  Country: IT (occurrence: IT)
  Receive Date: 20241122
  Receipt Date: 20241212
  Transmission Date: 20250114
  Serious: Yes (Death)
  Sender: REGENERON
  Company Number: None

PATIENT
  Age: 84 Year
  Sex: Female

DRUGS (1)
  1. LIBTAYO [Suspect]
     Active Substance: CEMIPLIMAB-RWLC
     Indication: Squamous cell carcinoma
     Dosage: 350 MG/DIE SINGLE DOSE FLAT
     Route: 042
     Dates: start: 20240910, end: 20240910

REACTIONS (1)
  - Myasthenic syndrome [Fatal]

NARRATIVE: CASE EVENT DATE: 20240929
